FAERS Safety Report 7056650-X (Version None)
Quarter: 2010Q4

REPORT INFORMATION
  Report Type: 
  Country: None (occurrence: None)
  Receive Date: 20101021
  Receipt Date: 20101011
  Transmission Date: 20110411
  Serious: Yes (Hospitalization, Other)
  Sender: FDA-Public Use
  Company Number: US-AMGEN GMBH-QUU440449

PATIENT

DRUGS (4)
  1. NPLATE [Suspect]
     Indication: IDIOPATHIC THROMBOCYTOPENIC PURPURA
     Dosage: 3 A?G/KG, UNK
     Dates: start: 20100721, end: 20100921
  2. NPLATE [Suspect]
     Dosage: 3 A?G/KG, UNK
     Dates: start: 20100721, end: 20100921
  3. PREDNISONE [Concomitant]
  4. METHYLPREDNISOLONE SODIUM SUCCINATE [Concomitant]

REACTIONS (2)
  - HOSPITALISATION [None]
  - THERAPEUTIC RESPONSE DECREASED [None]
